FAERS Safety Report 9515611 (Version 1)
Quarter: 2013Q3

REPORT INFORMATION
  Report Type: Spontaneous
  Country: US (occurrence: US)
  Receive Date: 20130911
  Receipt Date: 20130911
  Transmission Date: 20140515
  Serious: Yes (Other)
  Sender: FDA-Public Use
  Company Number: US-ASTELLAS-2013US009396

PATIENT
  Age: 84 Year
  Sex: Female

DRUGS (1)
  1. LEXISCAN [Suspect]
     Indication: SCAN MYOCARDIAL PERFUSION
     Dosage: UNK
     Route: 042
     Dates: start: 201303

REACTIONS (12)
  - Gastrointestinal hypomotility [Unknown]
  - Axillary mass [Unknown]
  - Muscle spasms [Unknown]
  - Facial wasting [Unknown]
  - Collagen disorder [Unknown]
  - Jaw disorder [Unknown]
  - Urinary incontinence [Unknown]
  - Faeces discoloured [Unknown]
  - Abdominal distension [Unknown]
  - Madarosis [Unknown]
  - Local swelling [Unknown]
  - Abdominal pain [Unknown]
